FAERS Safety Report 9126253 (Version 2)
Quarter: 2013Q1

REPORT INFORMATION
  Report Type: Spontaneous
  Country: US (occurrence: US)
  Receive Date: 20130117
  Receipt Date: 20130329
  Transmission Date: 20140127
  Serious: Yes (Death)
  Sender: FDA-Public Use
  Company Number: US-VIIV HEALTHCARE LIMITED-A1008534A

PATIENT
  Age: 67 Year
  Sex: Male

DRUGS (2)
  1. EPIVIR [Suspect]
     Indication: PRODUCT USED FOR UNKNOWN INDICATION
     Dosage: 150MG UNKNOWN
     Route: 065
     Dates: start: 20101224, end: 20121223
  2. SELZENTRY [Suspect]
     Indication: PRODUCT USED FOR UNKNOWN INDICATION
     Dosage: 300MG UNKNOWN
     Route: 065
     Dates: start: 20101224, end: 20121223

REACTIONS (3)
  - Cardiac pacemaker replacement [Unknown]
  - Procedural complication [Fatal]
  - Cardiac disorder [Fatal]
